FAERS Safety Report 4532532-X (Version None)
Quarter: 2004Q4

REPORT INFORMATION
  Report Type: 
  Country: None (occurrence: None)
  Receive Date: 20041206
  Receipt Date: 20040929
  Transmission Date: 20050328
  Serious: No
  Sender: FDA-Public Use
  Company Number: USA040979636

PATIENT
  Age: 68 Year
  Sex: Male

DRUGS (3)
  1. ALIMTA [Suspect]
     Indication: SMALL CELL LUNG CANCER STAGE UNSPECIFIED
     Dosage: 1000 MG
     Dates: start: 20040929
  2. DEXAMETHASONE [Concomitant]
  3. ANZEMET (DOLASETRON MESILATE) [Concomitant]

REACTIONS (1)
  - RASH [None]
